FAERS Safety Report 7363812-0 (Version None)
Quarter: 2011Q1

REPORT INFORMATION
  Report Type: 
  Country: None (occurrence: None)
  Receive Date: 20110321
  Receipt Date: 20110317
  Transmission Date: 20110831
  Serious: Yes (Hospitalization, Other)
  Sender: FDA-Public Use
  Company Number: US-ROCHE-494040

PATIENT
  Sex: Male
  Weight: 50.8 kg

DRUGS (5)
  1. ACCUTANE [Suspect]
     Route: 048
     Dates: start: 20020401, end: 20020701
  2. ACCUTANE [Suspect]
     Route: 048
     Dates: start: 20001122, end: 20010428
  3. ACCUTANE [Suspect]
     Route: 048
     Dates: start: 20010429, end: 20010521
  4. ACCUTANE [Suspect]
     Route: 048
     Dates: start: 20030310, end: 20030407
  5. BENZAMYCIN [Concomitant]
     Route: 061
     Dates: start: 20001221

REACTIONS (11)
  - INFLAMMATORY BOWEL DISEASE [None]
  - ANXIETY [None]
  - IRRITABLE BOWEL SYNDROME [None]
  - COLITIS [None]
  - FISTULA [None]
  - EMOTIONAL DISORDER [None]
  - DEPRESSION [None]
  - IRON DEFICIENCY ANAEMIA [None]
  - EMOTIONAL DISTRESS [None]
  - CROHN'S DISEASE [None]
  - OSTEOPENIA [None]
